FAERS Safety Report 17269565 (Version 6)
Quarter: 2020Q3

REPORT INFORMATION
  Report Type: Report from Study
  Country: US (occurrence: US)
  Receive Date: 20200114
  Receipt Date: 20200819
  Transmission Date: 20201102
  Serious: Yes (Hospitalization, Other)
  Sender: FDA-Public Use
  Company Number: US-ACTELION-A-US2018-183421

PATIENT
  Age: 77 Year
  Sex: Male
  Weight: 83.9 kg

DRUGS (8)
  1. OPSUMIT [Suspect]
     Active Substance: MACITENTAN
     Dosage: UNK
     Route: 048
  2. TYVASO [Suspect]
     Active Substance: TREPROSTINIL
     Dosage: 9 BREATHS PER TREATMENT
     Route: 065
  3. OPSUMIT [Suspect]
     Active Substance: MACITENTAN
     Indication: PULMONARY ARTERIAL HYPERTENSION
     Dosage: 10 MG, QD
     Route: 048
     Dates: start: 20181121
  4. TYVASO [Suspect]
     Active Substance: TREPROSTINIL
     Indication: PRODUCT USED FOR UNKNOWN INDICATION
     Dosage: UNK
     Route: 065
     Dates: start: 20190703
  5. XARELTO [Concomitant]
     Active Substance: RIVAROXABAN
  6. ADEMPAS [Suspect]
     Active Substance: RIOCIGUAT
     Dosage: 2 MG, TID
     Route: 065
  7. ADEMPAS [Suspect]
     Active Substance: RIOCIGUAT
     Dosage: 1.5 MG, TID
     Route: 065
  8. ADEMPAS [Suspect]
     Active Substance: RIOCIGUAT
     Indication: PRODUCT USED FOR UNKNOWN INDICATION
     Dosage: UNK
     Route: 065
     Dates: start: 201806

REACTIONS (28)
  - Bladder neoplasm [Unknown]
  - Transfusion [Unknown]
  - Drug ineffective [Not Recovered/Not Resolved]
  - Nasal congestion [Not Recovered/Not Resolved]
  - Sinusitis [Recovered/Resolved]
  - Haemorrhage [Unknown]
  - Gout [Recovering/Resolving]
  - Dizziness [Unknown]
  - Skin abrasion [Recovered/Resolved]
  - Flushing [Unknown]
  - Epistaxis [Unknown]
  - Pharyngeal swelling [Not Recovered/Not Resolved]
  - Disease complication [Unknown]
  - Hypotension [Recovered/Resolved]
  - Blood urine present [Unknown]
  - Vertigo [Unknown]
  - Back pain [Unknown]
  - Dyspnoea exertional [Unknown]
  - Throat cancer [Unknown]
  - Dyspnoea [Recovering/Resolving]
  - Memory impairment [Not Recovered/Not Resolved]
  - Nasopharyngitis [Unknown]
  - Oropharyngeal pain [Not Recovered/Not Resolved]
  - Haemoglobin decreased [Unknown]
  - Cough [Recovered/Resolved]
  - Fall [Unknown]
  - Headache [Unknown]
  - Hypersensitivity [Unknown]

NARRATIVE: CASE EVENT DATE: 20181128
